FAERS Safety Report 7944700-5 (Version None)
Quarter: 2011Q4

REPORT INFORMATION
  Report Type: 
  Country: None (occurrence: None)
  Receive Date: 20111129
  Receipt Date: 20111117
  Transmission Date: 20120403
  Serious: Yes (Hospitalization)
  Sender: FDA-Public Use
  Company Number: US-JNJFOC-20110508213

PATIENT
  Sex: Female

DRUGS (8)
  1. KEPPRA [Concomitant]
  2. EXTRA STRENGTH TYLENOL [Suspect]
     Indication: HEADACHE
  3. ACETAMINOPHEN W/ CODEINE [Suspect]
     Indication: BACK PAIN
  4. PROAIR HFA [Concomitant]
     Indication: DYSPNOEA
     Dosage: TWO PUFFS
  5. ASMANEX TWISTHALER [Concomitant]
     Dosage: AT BEDTIME
  6. EXTRA STRENGTH TYLENOL [Suspect]
     Indication: BACK PAIN
  7. FLUOXETINE [Concomitant]
     Indication: POSTPARTUM DEPRESSION
  8. IBUPROFEN [Concomitant]

REACTIONS (6)
  - URINARY TRACT INFECTION [None]
  - CHRONIC HEPATITIS [None]
  - MATERNAL EXPOSURE DURING PREGNANCY [None]
  - OVERDOSE [None]
  - INAPPROPRIATE SCHEDULE OF DRUG ADMINISTRATION [None]
  - DRUG ADMINISTRATION ERROR [None]
